FAERS Safety Report 12672254 (Version 2)
Quarter: 2016Q3

REPORT INFORMATION
  Report Type: Spontaneous
  Country: US (occurrence: US)
  Receive Date: 20160822
  Receipt Date: 20160916
  Transmission Date: 20161109
  Serious: No
  Sender: FDA-Public Use
  Company Number: US-PFIZER INC-2016368735

PATIENT
  Age: 67 Year
  Sex: Male

DRUGS (3)
  1. FUROSEMIDE. [Suspect]
     Active Substance: FUROSEMIDE
     Indication: BLOOD PRESSURE ABNORMAL
     Dosage: 20 MG, UNK
     Dates: start: 20141220
  2. FUROSEMIDE. [Suspect]
     Active Substance: FUROSEMIDE
     Indication: INFLAMMATION
  3. FUROSEMIDE. [Suspect]
     Active Substance: FUROSEMIDE
     Indication: URINARY RETENTION
     Dosage: 40 MG, 1X/DAY
     Dates: start: 20150312

REACTIONS (3)
  - Product use issue [Unknown]
  - Product size issue [Unknown]
  - Foreign body [Unknown]
